FAERS Safety Report 20774246 (Version 2)
Quarter: 2022Q2

REPORT INFORMATION
  Report Type: Spontaneous
  Country: US (occurrence: US)
  Receive Date: 20220502
  Receipt Date: 20220607
  Transmission Date: 20220721
  Serious: No
  Sender: FDA-Public Use
  Company Number: US-PFIZER INC-202200527838

PATIENT
  Age: 14 Year
  Sex: Male
  Weight: 99.79 kg

DRUGS (2)
  1. GENOTROPIN [Suspect]
     Active Substance: SOMATROPIN
     Indication: Prader-Willi syndrome
     Dosage: 3 MG  (6 DAYS A WEEK)
  2. GENOTROPIN [Suspect]
     Active Substance: SOMATROPIN
     Dosage: 3 MG  (6 DAYS A WEEK)

REACTIONS (3)
  - Device use error [Unknown]
  - Device malfunction [Unknown]
  - Device breakage [Unknown]
